FAERS Safety Report 17163041 (Version 1)
Quarter: 2019Q4

REPORT INFORMATION
  Report Type: Spontaneous
  Country: US (occurrence: US)
  Receive Date: 20191217
  Receipt Date: 20191217
  Transmission Date: 20200122
  Serious: Yes (Hospitalization)
  Sender: FDA-Public Use
  Company Number: US-ROCHE-2500723

PATIENT
  Age: 86 Year
  Sex: Male

DRUGS (7)
  1. GLIPIZIDE. [Concomitant]
     Active Substance: GLIPIZIDE
  2. LATANOPROST. [Concomitant]
     Active Substance: LATANOPROST
  3. ESBRIET [Suspect]
     Active Substance: PIRFENIDONE
     Indication: IDIOPATHIC PULMONARY FIBROSIS
     Route: 048
     Dates: start: 20191123
  4. ALLOPURINOL. [Concomitant]
     Active Substance: ALLOPURINOL
  5. ATENOLOL. [Concomitant]
     Active Substance: ATENOLOL
  6. HUMALOG [Concomitant]
     Active Substance: INSULIN LISPRO
  7. BUMETANIDE. [Concomitant]
     Active Substance: BUMETANIDE

REACTIONS (1)
  - Fall [Unknown]

NARRATIVE: CASE EVENT DATE: 20191206
